FAERS Safety Report 5097610-8 (Version None)
Quarter: 2006Q3

REPORT INFORMATION
  Report Type: 
  Country: None (occurrence: None)
  Receive Date: 20060901
  Receipt Date: 20060822
  Transmission Date: 20061208
  Serious: Yes (Other)
  Sender: FDA-Public Use
  Company Number: 2006102059

PATIENT
  Age: 59 Year
  Sex: Female
  Weight: 79.3795 kg

DRUGS (3)
  1. GEODON [Suspect]
     Indication: DRUG USE FOR UNKNOWN INDICATION
     Dosage: 80 MG (40 MG,2 IN 1 D), ORAL
     Route: 048
     Dates: start: 20060201, end: 20060701
  2. LAMICTAL [Concomitant]
  3. LORAZEPAM [Concomitant]

REACTIONS (3)
  - EYE PAIN [None]
  - HALO VISION [None]
  - VISUAL DISTURBANCE [None]
